FAERS Safety Report 5856271-8 (Version None)
Quarter: 2008Q3

REPORT INFORMATION
  Report Type: 
  Country: None (occurrence: None)
  Receive Date: 20080825
  Receipt Date: 20080814
  Transmission Date: 20090109
  Serious: Yes (Hospitalization)
  Sender: FDA-Public Use
  Company Number: B0531980A

PATIENT
  Age: 69 Year
  Sex: Male
  Weight: 70 kg

DRUGS (10)
  1. ARIXTRA [Suspect]
     Dosage: 2.5MG PER DAY
     Route: 058
     Dates: start: 20080604, end: 20080612
  2. HYPERIUM [Concomitant]
     Route: 065
  3. LOXEN [Concomitant]
     Route: 065
  4. FUROSEMIDE [Concomitant]
     Route: 065
  5. ATACAND [Concomitant]
     Route: 065
  6. DIFFU K [Concomitant]
     Route: 065
  7. INIPOMP [Concomitant]
     Route: 065
  8. EFFEXOR [Concomitant]
     Route: 065
  9. DANTRIUM [Concomitant]
     Route: 065
  10. IMOVANE [Concomitant]
     Route: 065

REACTIONS (3)
  - ATRIOVENTRICULAR BLOCK [None]
  - HAEMATURIA [None]
  - HAEMOGLOBIN DECREASED [None]
